FAERS Safety Report 23492243 (Version 1)
Quarter: 2024Q1

REPORT INFORMATION
  Report Type: Report from Study
  Country: ZA (occurrence: ZA)
  Receive Date: 20240207
  Receipt Date: 20240207
  Transmission Date: 20240410
  Serious: Yes (Hospitalization)
  Sender: FDA-Public Use
  Company Number: ZA-AstraZeneca-2024A024871

PATIENT
  Age: 9 Month
  Sex: Male
  Weight: 12.1 kg

DRUGS (1)
  1. SYNAGIS [Suspect]
     Active Substance: PALIVIZUMAB
     Indication: Antiviral prophylaxis
     Dosage: EVERY FOUR WEEKS
     Route: 030

REACTIONS (4)
  - Productive cough [Unknown]
  - Gastrooesophageal reflux disease [Unknown]
  - Infection [Unknown]
  - Impaired gastric emptying [Unknown]
